FAERS Safety Report 8605053 (Version 8)
Quarter: 2012Q4

REPORT INFORMATION
  Report Type: 
  Country: DE (occurrence: DE)
  Receive Date: 20120608
  Receipt Date: 20121008
  Transmission Date: 20130627
  Serious: Yes (Hospitalization, Other)
  Sender: FDA-Public Use
  Company Number: DE-UCBSA-058670

PATIENT
  Age: 24 Year
  Sex: Female

DRUGS (7)
  1. VIMPAT [Suspect]
     Dosage: 50 mg (1-0-1)
     Dates: start: 20110902, end: 20110908
  2. VIMPAT [Suspect]
     Dosage: 50 mg (2-0-2) / alternative 100 mg (1-0-1)
     Dates: start: 20110909
  3. VIMPAT [Suspect]
     Dosage: 150 mg - 0 - 200 mg
     Dates: start: 20120215, end: 20120229
  4. VIMPAT [Suspect]
     Dosage: 200 MG (1-0-1)
     Dates: start: 20120301, end: 2012
  5. VIMPAT [Suspect]
     Dosage: 2x100 MG
     Dates: start: 20120515
  6. TOPIRAMAX [Concomitant]
     Dosage: 100 MG (1-0-1)
  7. TOPIRAMAX [Concomitant]
     Dosage: 50 MG (1-0-1)

REACTIONS (23)
  - Drug intolerance [Recovered/Resolved]
  - Paraparesis [Recovered/Resolved]
  - Balance disorder [Recovered/Resolved]
  - Coordination abnormal [Recovered/Resolved]
  - Somnolence [Recovered/Resolved]
  - Tremor [Recovered/Resolved]
  - Nystagmus [Recovered/Resolved]
  - Aphasia [Recovered/Resolved]
  - Vision blurred [Recovered/Resolved]
  - Vertigo [Recovered/Resolved]
  - Vomiting [Recovered/Resolved]
  - Fall [Recovered/Resolved]
  - Gait disturbance [Recovered/Resolved]
  - Asthenia [Recovered/Resolved]
  - Fatigue [Recovered/Resolved]
  - Depression [Recovered/Resolved]
  - Confusional state [Recovered/Resolved]
  - Dysarthria [Recovered/Resolved]
  - Attention deficit/hyperactivity disorder [Recovered/Resolved]
  - Ear discomfort [Recovered/Resolved]
  - Irritability [Recovered/Resolved]
  - Heart rate decreased [Recovered/Resolved]
  - Akathisia [Recovered/Resolved]
